FAERS Safety Report 7705971-3 (Version None)
Quarter: 2011Q3

REPORT INFORMATION
  Report Type: 
  Country: None (occurrence: None)
  Receive Date: 20110824
  Receipt Date: 20110817
  Transmission Date: 20111222
  Serious: Yes (Hospitalization)
  Sender: FDA-Public Use
  Company Number: PHHY2011ES73528

PATIENT
  Age: 60 Year
  Sex: Male

DRUGS (6)
  1. PREDNISONE [Concomitant]
     Indication: RENAL TRANSPLANT
     Dosage: 10 MG, QD
     Route: 048
     Dates: start: 20110404
  2. SEPTRIN FORTE [Concomitant]
     Indication: INFECTION PROPHYLAXIS
     Dosage: UNK UKN, UNK
     Dates: start: 20110223
  3. FLEBOGAMMA [Suspect]
     Dosage: 40 G,
     Route: 042
     Dates: start: 20110618
  4. MYFORTIC [Suspect]
     Indication: RENAL TRANSPLANT
     Dosage: 360 MG, BID
     Route: 048
     Dates: start: 20110413, end: 20110621
  5. CITALOPRAM HYDROBROMIDE [Concomitant]
     Indication: DEPRESSION
     Dosage: 50 MG, QD
     Route: 048
     Dates: start: 20110208
  6. TACROLIMUS [Concomitant]
     Indication: RENAL TRANSPLANT
     Dosage: 3 MG, QD
     Route: 048
     Dates: start: 20110303

REACTIONS (1)
  - FEBRILE NEUTROPENIA [None]
